FAERS Safety Report 16635778 (Version 1)
Quarter: 2019Q3

REPORT INFORMATION
  Report Type: Spontaneous
  Country: JP (occurrence: JP)
  Receive Date: 20190726
  Receipt Date: 20190726
  Transmission Date: 20191004
  Serious: Yes (Hospitalization, Other)
  Sender: FDA-Public Use
  Company Number: JP-SUN PHARMACEUTICAL INDUSTRIES LTD-2019RR-215146

PATIENT
  Age: 46 Year
  Sex: Male

DRUGS (4)
  1. BLONANSERIN [Suspect]
     Active Substance: BLONANSERIN
     Indication: SCHIZOPHRENIA
     Dosage: 24 MILLIGRAM, DAILY
     Route: 065
  2. RISPERIDONE. [Interacting]
     Active Substance: RISPERIDONE
     Dosage: 2 MILLIGRAM, DAILY
     Route: 065
  3. RISPERIDONE. [Suspect]
     Active Substance: RISPERIDONE
     Indication: SCHIZOPHRENIA
     Dosage: 4 MILLIGRAM, DAILY
     Route: 065
  4. PALIPERIDONE. [Interacting]
     Active Substance: PALIPERIDONE
     Indication: SCHIZOPHRENIA
     Dosage: 6 MILLIGRAM, DAILY
     Route: 065

REACTIONS (8)
  - Hypotension [Unknown]
  - Agranulocytosis [Unknown]
  - Condition aggravated [Unknown]
  - Walking disability [Unknown]
  - Pyrexia [Unknown]
  - Tachycardia [Unknown]
  - Pneumonia [Recovered/Resolved]
  - Drug interaction [Unknown]
